FAERS Safety Report 5144589-6 (Version None)
Quarter: 2006Q4

REPORT INFORMATION
  Report Type: 
  Country: None (occurrence: None)
  Receive Date: 20061031
  Receipt Date: 20061025
  Transmission Date: 20070319
  Serious: Yes (Other)
  Sender: FDA-Public Use
  Company Number: S06-FRA-03948-01

PATIENT
  Sex: Male

DRUGS (6)
  1. MEMANTINE HCL [Suspect]
     Indication: DEMENTIA ALZHEIMER'S TYPE
     Dosage: 10 MG QD PO
     Route: 048
     Dates: start: 20060412, end: 20060628
  2. MEMANTINE HCL [Suspect]
     Indication: DEMENTIA ALZHEIMER'S TYPE
     Dosage: 20 MG QD PO
     Route: 048
     Dates: start: 20060629
  3. IKOREL            (NICORANDIL) [Concomitant]
  4. ATENOL              (ATENOLOL) [Concomitant]
  5. PRAVASTATIN [Concomitant]
  6. EQUANIL [Concomitant]

REACTIONS (3)
  - ESCHERICHIA INFECTION [None]
  - PROSTATITIS [None]
  - SEPSIS [None]
